FAERS Safety Report 7972049-3 (Version None)
Quarter: 2011Q4

REPORT INFORMATION
  Report Type: 
  Country: None (occurrence: None)
  Receive Date: 20111212
  Receipt Date: 20111130
  Transmission Date: 20120403
  Serious: Yes (Other)
  Sender: FDA-Public Use
  Company Number: US-ELI_LILLY_AND_COMPANY-US201101007117

PATIENT
  Sex: Female

DRUGS (11)
  1. FORTEO [Suspect]
     Dosage: 20 UG, QD
     Route: 058
  2. FORTEO [Suspect]
     Dosage: 20 UG, QD
     Route: 058
  3. FORTEO [Suspect]
     Dosage: 20 UG, QD
     Route: 058
  4. FORTEO [Suspect]
     Indication: OSTEOPOROSIS
     Dosage: 20 UG, DAILY (1/D)
     Route: 058
  5. CALCIUM [Concomitant]
     Dosage: UNK, QOD
  6. PREDNISONE [Concomitant]
     Dosage: 5 MG, UNK
  7. VITAMIN D [Concomitant]
     Indication: BONE DISORDER
  8. FORTEO [Suspect]
     Dosage: 20 UG, QOD
     Route: 058
  9. FORTEO [Suspect]
     Dosage: 20 UG, QD
     Route: 058
  10. PREDNISONE [Concomitant]
     Dosage: 10 MG, UNK
  11. PREDNISONE [Concomitant]
     Dosage: 2.5 MG, UNK

REACTIONS (11)
  - ABDOMINAL DISCOMFORT [None]
  - INJECTION SITE HAEMATOMA [None]
  - DYSSTASIA [None]
  - DIZZINESS [None]
  - NAUSEA [None]
  - CYSTITIS [None]
  - BACK PAIN [None]
  - CONSTIPATION [None]
  - SOMNOLENCE [None]
  - EATING DISORDER [None]
  - SPINAL FRACTURE [None]
